FAERS Safety Report 5360297-0 (Version None)
Quarter: 2007Q2

REPORT INFORMATION
  Report Type: 
  Country: None (occurrence: None)
  Receive Date: 20070618
  Receipt Date: 20070611
  Transmission Date: 20071010
  Serious: Yes (Hospitalization)
  Sender: FDA-Public Use
  Company Number: FR-BRISTOL-MYERS SQUIBB COMPANY-13815105

PATIENT
  Age: 47 Year
  Sex: Male

DRUGS (3)
  1. GLUCOPHAGE [Suspect]
     Indication: DIABETES MELLITUS NON-INSULIN-DEPENDENT
     Route: 048
     Dates: end: 20060827
  2. AVLOCARDYL [Suspect]
     Indication: DIABETES MELLITUS
     Route: 048
     Dates: end: 20060827
  3. AVANDIA [Suspect]
     Indication: DIABETES MELLITUS
     Route: 048
     Dates: end: 20060827

REACTIONS (2)
  - HEPATIC STEATOSIS [None]
  - PANCREATITIS ACUTE [None]
